FAERS Safety Report 17895751 (Version 1)
Quarter: 2020Q2

REPORT INFORMATION
  Report Type: Spontaneous
  Country: US (occurrence: US)
  Receive Date: 20200615
  Receipt Date: 20200615
  Transmission Date: 20200714
  Serious: Yes (Death)
  Sender: FDA-Public Use
  Company Number: None

PATIENT
  Sex: Female

DRUGS (3)
  1. XELODA [Suspect]
     Active Substance: CAPECITABINE
     Indication: CHEMOTHERAPY
  2. XELODA [Suspect]
     Active Substance: CAPECITABINE
     Indication: NEOPLASM MALIGNANT
  3. OMEPRAZOLE. [Concomitant]
     Active Substance: OMEPRAZOLE

REACTIONS (13)
  - Sepsis [None]
  - Product label issue [None]
  - Vomiting [None]
  - Pyrexia [None]
  - Fatigue [None]
  - Pain [None]
  - Prescribed overdose [None]
  - Diarrhoea [None]
  - Stomatitis [None]
  - Malaise [None]
  - Nausea [None]
  - Chills [None]
  - Bowel movement irregularity [None]
